FAERS Safety Report 8985047 (Version 1)
Quarter: 2012Q4

REPORT INFORMATION
  Report Type: 
  Country: CO (occurrence: CO)
  Receive Date: 20121225
  Receipt Date: 20121225
  Transmission Date: 20130627
  Serious: Yes (Hospitalization, Other)
  Sender: FDA-Public Use
  Company Number: CO-AMGEN-COLSP2012082357

PATIENT
  Age: 43 Year
  Sex: Female

DRUGS (5)
  1. ENBREL [Suspect]
     Indication: RHEUMATOID ARTHRITIS
     Dosage: 50 mg, weekly
     Route: 058
     Dates: start: 2008, end: 201209
  2. PREDNISOLONE [Concomitant]
     Indication: RHEUMATOID ARTHRITIS
     Dosage: 5 mg, 1x/day
     Route: 048
     Dates: end: 201204
  3. CALCIUM [Concomitant]
     Indication: OSTEOPOROSIS
     Dosage: 600 mg, 1x/day
     Route: 048
  4. FOLIC ACID [Concomitant]
     Indication: RHEUMATOID ARTHRITIS
     Dosage: 25 mg, 3x/day
     Route: 048
  5. METHOTREXATE [Concomitant]
     Dosage: 4 mg, UNK

REACTIONS (3)
  - Haemorrhoids [Recovered/Resolved]
  - Bipolar disorder [Not Recovered/Not Resolved]
  - Respiratory depression [Unknown]
